FAERS Safety Report 10220980 (Version 1)
Quarter: 2014Q2

REPORT INFORMATION
  Report Type: Spontaneous
  Country: US (occurrence: None)
  Receive Date: 20140605
  Receipt Date: 20140605
  Transmission Date: 20141212
  Serious: Yes (Other)
  Sender: FDA-Public Use
  Company Number: None

PATIENT
  Age: 64 Year
  Sex: Female
  Weight: 63.5 kg

DRUGS (19)
  1. FLUTICASONE PROPIONATE NASAL SPRAY [Suspect]
     Indication: HYPERSENSITIVITY
     Dosage: 1 SPRAY EACH NOSTRIL 1X DAY?
     Route: 055
     Dates: start: 20140306, end: 20140603
  2. FLUTICASONE PROPIONATE NASAL SPRAY [Suspect]
     Indication: EYE PRURITUS
     Dosage: 1 SPRAY EACH NOSTRIL 1X DAY?
     Route: 055
     Dates: start: 20140306, end: 20140603
  3. FLUTICASONE PROPIONATE NASAL SPRAY [Suspect]
     Indication: LACRIMATION INCREASED
     Dosage: 1 SPRAY EACH NOSTRIL 1X DAY?
     Route: 055
     Dates: start: 20140306, end: 20140603
  4. FLUTICASONE PROPIONATE NASAL SPRAY [Suspect]
     Indication: RHINORRHOEA
     Dosage: 1 SPRAY EACH NOSTRIL 1X DAY?
     Route: 055
     Dates: start: 20140306, end: 20140603
  5. FLUTICASONE PROPIONATE NASAL SPRAY [Suspect]
     Indication: THROAT IRRITATION
     Dosage: 1 SPRAY EACH NOSTRIL 1X DAY?
     Route: 055
     Dates: start: 20140306, end: 20140603
  6. FLUTICASONE PROPIONATE NASAL SPRAY [Suspect]
     Indication: NASAL DISCOMFORT
     Dosage: 1 SPRAY EACH NOSTRIL 1X DAY?
     Route: 055
     Dates: start: 20140306, end: 20140603
  7. BENICAR [Concomitant]
  8. METHAMPETAMINE SALTS [Concomitant]
  9. NEXIUM [Concomitant]
  10. METOPROLOL [Concomitant]
  11. TRAZODONE [Concomitant]
  12. LORAZEPAM [Concomitant]
  13. ALPRAZOLAM [Concomitant]
  14. VITAMIN B [Concomitant]
  15. MULTI [Concomitant]
  16. COQ 10 [Concomitant]
  17. MAGNESIUM CALCIUM [Concomitant]
  18. D [Concomitant]
  19. ADVIL PM [Concomitant]

REACTIONS (6)
  - Wheezing [None]
  - Lung disorder [None]
  - Cough [None]
  - Increased viscosity of nasal secretion [None]
  - Dysphonia [None]
  - Product substitution issue [None]
